FAERS Safety Report 13434683 (Version 1)
Quarter: 2017Q2

REPORT INFORMATION
  Report Type: Spontaneous
  Country: US (occurrence: US)
  Receive Date: 20170413
  Receipt Date: 20170413
  Transmission Date: 20170830
  Serious: No
  Sender: FDA-Public Use
  Company Number: US-PFIZER INC-2017154137

PATIENT
  Sex: Male

DRUGS (1)
  1. XELJANZ XR [Suspect]
     Active Substance: TOFACITINIB CITRATE
     Dosage: 11 MG, UNK

REACTIONS (19)
  - Sleep disorder [Unknown]
  - Wheezing [Unknown]
  - Dry eye [Unknown]
  - Hyperhidrosis [Unknown]
  - Joint swelling [Unknown]
  - Joint stiffness [Unknown]
  - Depression [Unknown]
  - Fatigue [Unknown]
  - Dry mouth [Unknown]
  - Constipation [Unknown]
  - Tremor [Unknown]
  - Thirst [Unknown]
  - Back pain [Unknown]
  - Asthenia [Unknown]
  - Malaise [Unknown]
  - Arthralgia [Unknown]
  - Myalgia [Unknown]
  - Paraesthesia [Unknown]
  - Anxiety [Unknown]
